FAERS Safety Report 10515784 (Version 2)
Quarter: 2014Q4

REPORT INFORMATION
  Report Type: Report from Study
  Country: US (occurrence: US)
  Receive Date: 20141014
  Receipt Date: 20141103
  Transmission Date: 20150528
  Serious: Yes (Other)
  Sender: FDA-Public Use
  Company Number: US-BEH-2014045504

PATIENT
  Age: 31 Year
  Sex: Female

DRUGS (5)
  1. ALBUMINAR-5 [Suspect]
     Active Substance: ALBUMIN (HUMAN)
     Indication: CYTOMEGALOVIRUS INFECTION
  2. CYTOGAM [Suspect]
     Active Substance: HUMAN CYTOMEGALOVIRUS IMMUNE GLOBULIN
     Route: 042
     Dates: start: 20120625, end: 20120625
  3. CYTOGAM [Suspect]
     Active Substance: HUMAN CYTOMEGALOVIRUS IMMUNE GLOBULIN
     Indication: CYTOMEGALOVIRUS INFECTION
     Route: 042
     Dates: start: 20120917, end: 20120917
  4. LABETALOL [Concomitant]
     Active Substance: LABETALOL\LABETALOL HYDROCHLORIDE
     Indication: PULMONARY HYPERTENSION
     Route: 048
     Dates: start: 20140403, end: 20140612
  5. LISINOPRIL. [Concomitant]
     Active Substance: LISINOPRIL
     Indication: PULMONARY HYPERTENSION

REACTIONS (2)
  - Foetal death [Recovered/Resolved]
  - Exposure during pregnancy [Recovered/Resolved]

NARRATIVE: CASE EVENT DATE: 20120625
